FAERS Safety Report 5163285-2 (Version None)
Quarter: 2006Q4

REPORT INFORMATION
  Report Type: 
  Country: None (occurrence: None)
  Receive Date: 20061121
  Receipt Date: 20061109
  Transmission Date: 20070319
  Serious: Yes (Other)
  Sender: FDA-Public Use
  Company Number: 2006138674

PATIENT
  Age: 80 Year
  Sex: Male
  Weight: 82.5547 kg

DRUGS (2)
  1. BENGAY PAIN RELIEVING PATCH (MENTHOL) [Suspect]
     Indication: BACK PAIN
     Dosage: ONE PATCH DAILY, TOPICAL
     Route: 061
     Dates: start: 20061101, end: 20061109
  2. FOSINOPRIL SODIUM [Concomitant]

REACTIONS (6)
  - APPLICATION SITE IRRITATION [None]
  - APPLICATION SITE PAIN [None]
  - APPLICATION SITE URTICARIA [None]
  - APPLICATION SITE VESICLES [None]
  - FEELING ABNORMAL [None]
  - PYREXIA [None]
